FAERS Safety Report 20279746 (Version 1)
Quarter: 2022Q1

REPORT INFORMATION
  Report Type: Spontaneous
  Country: FR (occurrence: FR)
  Receive Date: 20220103
  Receipt Date: 20220103
  Transmission Date: 20220423
  Serious: Yes (Hospitalization)
  Sender: FDA-Public Use
  Company Number: None

PATIENT
  Age: 51 Year
  Sex: Male

DRUGS (9)
  1. CEFTRIAXONE [Suspect]
     Active Substance: CEFTRIAXONE
     Indication: Infection prophylaxis
     Dosage: 2 GRAM, QD
     Route: 042
     Dates: start: 20210908, end: 20210922
  2. VALACYCLOVIR HYDROCHLORIDE [Suspect]
     Active Substance: VALACYCLOVIR HYDROCHLORIDE
     Indication: Infection prophylaxis
     Dosage: 1 GRAM, QD
     Route: 048
     Dates: start: 20210901, end: 20210921
  3. BACTRIM [Suspect]
     Active Substance: SULFAMETHOXAZOLE\TRIMETHOPRIM
     Indication: Product used for unknown indication
     Dosage: 800 MILLIGRAM, Q3W
     Route: 048
     Dates: start: 20210913, end: 20210923
  4. HEPARIN SODIUM [Suspect]
     Active Substance: HEPARIN SODIUM
     Indication: Product used for unknown indication
     Dosage: 8000 INTERNATIONAL UNIT, QD
     Route: 042
     Dates: start: 20210901, end: 20210924
  5. TRIMEBUTINE MALEATE [Suspect]
     Active Substance: TRIMEBUTINE MALEATE
     Indication: Product used for unknown indication
     Dosage: 150 MILLIGRAM, QD
     Route: 042
     Dates: start: 20210906, end: 20210923
  6. CHLORPROMAZINE [Suspect]
     Active Substance: CHLORPROMAZINE
     Indication: Product used for unknown indication
     Dosage: 50 MILLIGRAM, QD
     Route: 042
     Dates: start: 20210908, end: 20210922
  7. MELPHALAN [Suspect]
     Active Substance: MELPHALAN
     Indication: Plasma cell myeloma
     Dosage: 400 MILLIGRAM, CYCLE
     Route: 041
     Dates: start: 20210904, end: 20210904
  8. PIPERACILLIN SODIUM\TAZOBACTAM SODIUM [Suspect]
     Active Substance: PIPERACILLIN SODIUM\TAZOBACTAM SODIUM
     Indication: Infection prophylaxis
     Dosage: 4 GRAM, QD
     Route: 042
     Dates: start: 20210917, end: 20210922
  9. ACUPAN [Suspect]
     Active Substance: NEFOPAM HYDROCHLORIDE
     Indication: Gait disturbance
     Dosage: 20 MILLIGRAM, PRN
     Route: 042
     Dates: start: 20210906, end: 20210920

REACTIONS (4)
  - Vomiting [Recovered/Resolved]
  - Oesophagitis [Recovered/Resolved]
  - Duodenitis [Recovered/Resolved]
  - Gastritis [Recovered/Resolved]

NARRATIVE: CASE EVENT DATE: 20210920
